FAERS Safety Report 15264298 (Version 2)
Quarter: 2018Q3

REPORT INFORMATION
  Report Type: Report from Study
  Country: None (occurrence: US)
  Receive Date: 20180810
  Receipt Date: 20180817
  Transmission Date: 20181010
  Serious: Yes (Death, Hospitalization)
  Sender: FDA-Public Use
  Company Number: US-ABBVIE-18K-163-2445010-00

PATIENT
  Sex: Male

DRUGS (1)
  1. HUMIRA [Suspect]
     Active Substance: ADALIMUMAB
     Indication: CROHN^S DISEASE
     Route: 058

REACTIONS (6)
  - Shock [Fatal]
  - Myocardial infarction [Fatal]
  - Crohn^s disease [Unknown]
  - Cardiac arrest [Fatal]
  - Thrombosis [Unknown]
  - Malaise [Unknown]
